FAERS Safety Report 18489913 (Version 3)
Quarter: 2020Q4

REPORT INFORMATION
  Report Type: Spontaneous
  Country: CA (occurrence: CA)
  Receive Date: 20201111
  Receipt Date: 20201119
  Transmission Date: 20210114
  Serious: Yes (Life-Threatening, Hospitalization, Other)
  Sender: FDA-Public Use
  Company Number: CA-MYLANLABS-2020M1093970

PATIENT
  Age: 12 Year
  Sex: Female
  Weight: 36 kg

DRUGS (10)
  1. VALPROIC ACID. [Suspect]
     Active Substance: VALPROIC ACID
     Indication: MYOCLONIC EPILEPSY
  2. TOPIRAMATE. [Concomitant]
     Active Substance: TOPIRAMATE
     Indication: MYOCLONIC EPILEPSY
     Dosage: UNK
     Route: 065
  3. LEVOCARNITINE. [Suspect]
     Active Substance: LEVOCARNITINE
     Dosage: 50 MILLIGRAM/KILOGRAM, QD
     Route: 042
  4. CLONAZEPAM. [Concomitant]
     Active Substance: CLONAZEPAM
     Indication: MYOCLONIC EPILEPSY
     Dosage: UNK
     Route: 065
  5. LEVOCARNITINE. [Suspect]
     Active Substance: LEVOCARNITINE
     Indication: HYPERAMMONAEMIC ENCEPHALOPATHY
     Dosage: 700 MILLIGRAM, Q8H
     Route: 042
  6. LAMOTRIGINE. [Concomitant]
     Active Substance: LAMOTRIGINE
     Indication: MYOCLONIC EPILEPSY
     Dosage: UNK
     Route: 065
  7. LEVETIRACETAM. [Concomitant]
     Active Substance: LEVETIRACETAM
     Indication: MYOCLONIC EPILEPSY
     Dosage: UNK
  8. VALPROIC ACID. [Suspect]
     Active Substance: VALPROIC ACID
     Indication: SEIZURE
     Dosage: UNK
     Route: 065
  9. LEVOCARNITINE. [Suspect]
     Active Substance: LEVOCARNITINE
     Dosage: 200 MILLIGRAM/KILOGRAM
     Route: 042
  10. CARGLUMIC ACID [Suspect]
     Active Substance: CARGLUMIC ACID
     Indication: HYPERAMMONAEMIC ENCEPHALOPATHY
     Dosage: 20 TABLETS; TOTAL DOSE: 4400MG; 244 MG/KG/DAY
     Route: 065

REACTIONS (10)
  - Abdominal discomfort [Unknown]
  - Gait disturbance [Unknown]
  - Fatigue [Unknown]
  - Rebound effect [Not Recovered/Not Resolved]
  - Tremor [Unknown]
  - Vomiting [Unknown]
  - Hyperammonaemic encephalopathy [Not Recovered/Not Resolved]
  - Off label use [Not Recovered/Not Resolved]
  - Behaviour disorder [Unknown]
  - Disorientation [Unknown]
